FAERS Safety Report 11814414 (Version 1)
Quarter: 2015Q4

REPORT INFORMATION
  Report Type: Spontaneous
  Country: US (occurrence: None)
  Receive Date: 20151208
  Receipt Date: 20151208
  Transmission Date: 20160305
  Serious: No
  Sender: FDA-Public Use
  Company Number: None

PATIENT
  Age: 39 Year
  Sex: Female
  Weight: 88.45 kg

DRUGS (7)
  1. AMPHETAMINE SALTS [Suspect]
     Active Substance: AMPHETAMINE ASPARTATE\AMPHETAMINE SULFATE\DEXTROAMPHETAMINE SACCHARATE\DEXTROAMPHETAMINE SULFATE
     Indication: ATTENTION DEFICIT/HYPERACTIVITY DISORDER
     Dosage: TAKEN BY MOUTH
     Dates: start: 20151124, end: 20151207
  2. MAGNESIUM [Concomitant]
     Active Substance: MAGNESIUM
  3. FIBER CHEWS [Concomitant]
  4. CALCIUM SUPP [Concomitant]
  5. AMPHETAMINE [Concomitant]
     Active Substance: AMPHETAMINE
  6. MULTI-VITAMIN [Concomitant]
     Active Substance: .ALPHA.-TOCOPHEROL ACETATE, DL-\ASCORBIC ACID\CYANOCOBALAMIN\FLUORIDE ION\FOLIC ACID\NIACIN\PYRIDOXINE\RIBOFLAVIN\THIAMINE\VITAMIN A\VITAMIN D
  7. LEVOTHYROXINE. [Concomitant]
     Active Substance: LEVOTHYROXINE

REACTIONS (3)
  - Drug ineffective [None]
  - Mental impairment [None]
  - Product substitution issue [None]

NARRATIVE: CASE EVENT DATE: 20151124
